FAERS Safety Report 12168452 (Version 2)
Quarter: 2016Q1

REPORT INFORMATION
  Report Type: Spontaneous
  Country: US (occurrence: US)
  Receive Date: 20160310
  Receipt Date: 20160322
  Transmission Date: 20160526
  Serious: Yes (Other)
  Sender: FDA-Public Use
  Company Number: US-ARBOR PHARMACEUTICALS, LLC-US-2016ARB000174

PATIENT

DRUGS (5)
  1. EDARBI [Suspect]
     Active Substance: AZILSARTAN KAMEDOXOMIL
     Indication: HYPERTENSION
     Dosage: 40 MG, UNK
     Route: 048
     Dates: start: 20160225
  2. EDARBI [Suspect]
     Active Substance: AZILSARTAN KAMEDOXOMIL
     Dosage: 40 MG, UNK
     Route: 048
     Dates: start: 20160225
  3. EDARBI [Suspect]
     Active Substance: AZILSARTAN KAMEDOXOMIL
     Dosage: 1/4 TABLET, QD
     Route: 048
     Dates: start: 20160225
  4. EDARBI [Suspect]
     Active Substance: AZILSARTAN KAMEDOXOMIL
     Dosage: 40 MG, UNK
     Route: 048
     Dates: start: 20160225, end: 201602
  5. EDARBI [Suspect]
     Active Substance: AZILSARTAN KAMEDOXOMIL
     Dosage: 40 MG, UNK
     Route: 048
     Dates: start: 20160225

REACTIONS (14)
  - Hypertension [Not Recovered/Not Resolved]
  - Psychomotor hyperactivity [Unknown]
  - Fatigue [Unknown]
  - Wrong technique in product usage process [Not Recovered/Not Resolved]
  - Heart rate increased [Unknown]
  - Urine abnormality [Unknown]
  - Product quality issue [Unknown]
  - Sleep disorder [Unknown]
  - Incoherent [Unknown]
  - Increased appetite [Unknown]
  - Swelling face [Unknown]
  - Drug ineffective [Unknown]
  - Feeling abnormal [Unknown]
  - Chromaturia [Unknown]

NARRATIVE: CASE EVENT DATE: 201502
